FAERS Safety Report 5803131-4 (Version None)
Quarter: 2008Q3

REPORT INFORMATION
  Report Type: 
  Country: None (occurrence: None)
  Receive Date: 20080708
  Receipt Date: 20080626
  Transmission Date: 20090109
  Serious: Yes (Other)
  Sender: FDA-Public Use
  Company Number: GB-MERCK-0805GBR00106

PATIENT
  Age: 38 Year
  Sex: Male
  Weight: 70 kg

DRUGS (4)
  1. ISENTRESS [Suspect]
     Indication: HIV TEST
     Route: 048
  2. MARAVIROC [Concomitant]
     Indication: HIV TEST
     Route: 065
     Dates: start: 20070920
  3. TRUVADA [Concomitant]
     Indication: HIV TEST
     Route: 065
     Dates: start: 20070920
  4. NEVIRAPINE [Concomitant]
     Indication: HIV TEST
     Route: 065
     Dates: start: 20070920

REACTIONS (2)
  - CYST [None]
  - RECTAL CANCER [None]
